FAERS Safety Report 10426322 (Version 1)
Quarter: 2014Q3

REPORT INFORMATION
  Report Type: Spontaneous
  Country: US (occurrence: None)
  Receive Date: 20140725
  Receipt Date: 20140725
  Transmission Date: 20150326
  Serious: No
  Sender: FDA-Public Use
  Company Number: AP356-00852-SPO-US

PATIENT
  Age: 40 Year
  Sex: Female

DRUGS (2)
  1. BELVIQ [Suspect]
     Active Substance: LORCASERIN HYDROCHLORIDE
     Indication: WEIGHT CONTROL
     Dosage: 20 MG, 2 IN 1 D, ORAL
     Route: 048
     Dates: start: 20140604, end: 20140607
  2. LOSARTAN (LOSARTAN) [Concomitant]
     Active Substance: LOSARTAN

REACTIONS (2)
  - Peripheral swelling [None]
  - Arthralgia [None]

NARRATIVE: CASE EVENT DATE: 20140606
